FAERS Safety Report 18404258 (Version 3)
Quarter: 2020Q4

REPORT INFORMATION
  Report Type: Spontaneous
  Country: BE (occurrence: BE)
  Receive Date: 20201020
  Receipt Date: 20201214
  Transmission Date: 20210114
  Serious: Yes (Other)
  Sender: FDA-Public Use
  Company Number: BE-BAUSCH-BL-2020-030330

PATIENT
  Age: 75 Year
  Sex: Female

DRUGS (2)
  1. KYNTHEUM [Suspect]
     Active Substance: BRODALUMAB
     Indication: PSORIASIS
     Dosage: 210 MG/1.5 ML, AT WEEK 0, 1, 2
     Route: 065
     Dates: start: 201806, end: 2018
  2. KYNTHEUM [Suspect]
     Active Substance: BRODALUMAB
     Dosage: 210 MG/1.5 ML EVERY TWO WEEKS
     Route: 065
     Dates: start: 2018, end: 20201023

REACTIONS (1)
  - Morphoea [Recovering/Resolving]
